FAERS Safety Report 24331088 (Version 2)
Quarter: 2024Q3

REPORT INFORMATION
  Report Type: Report from Study
  Country: US (occurrence: US)
  Receive Date: 20240918
  Receipt Date: 20240921
  Transmission Date: 20241017
  Serious: Yes (Other)
  Sender: ABBVIE
  Company Number: US-ABBVIE-5922852

PATIENT
  Age: 64 Year
  Sex: Female

DRUGS (3)
  1. SKYRIZI [Suspect]
     Active Substance: RISANKIZUMAB-RZAA
     Indication: Psoriasis
     Dosage: UNKNOWN
     Route: 058
     Dates: start: 202308
  2. SKYRIZI [Suspect]
     Active Substance: RISANKIZUMAB-RZAA
     Dosage: WEEK 0
     Route: 058
     Dates: start: 20230530, end: 20230530
  3. LORAZEPAM [Concomitant]
     Active Substance: LORAZEPAM
     Indication: Restless legs syndrome

REACTIONS (4)
  - Brain stent insertion [Recovering/Resolving]
  - Coeliac artery compression syndrome [Unknown]
  - Nausea [Recovered/Resolved with Sequelae]
  - Abdominal pain upper [Not Recovered/Not Resolved]

NARRATIVE: CASE EVENT DATE: 20240801
